FAERS Safety Report 8363583-5 (Version None)
Quarter: 2012Q2

REPORT INFORMATION
  Report Type: 
  Country: None (occurrence: None)
  Receive Date: 20120516
  Receipt Date: 20120510
  Transmission Date: 20120825
  Serious: Yes (Other)
  Sender: FDA-Public Use
  Company Number: PHHY2012GB032783

PATIENT
  Age: 42 Year
  Sex: Male

DRUGS (5)
  1. VENLAFAXINE [Interacting]
     Dosage: 150 MG, DAILY
  2. DIAZEPAM [Concomitant]
     Dosage: 2 MG, BID
  3. HYOSCINE HYDROBROMIDE [Concomitant]
     Indication: CHRONIC OBSTRUCTIVE PULMONARY DISEASE
     Dosage: 300 UG, BID
  4. LOFEPRAMINE [Concomitant]
     Dosage: 140 MG, UNK
  5. CLOZAPINE [Suspect]
     Indication: SCHIZOPHRENIA, PARANOID TYPE
     Dosage: 400 MG, UNK

REACTIONS (3)
  - DRUG INTERACTION [None]
  - PSYCHIATRIC SYMPTOM [None]
  - ANTIPSYCHOTIC DRUG LEVEL ABOVE THERAPEUTIC [None]
